FAERS Safety Report 7323581-7 (Version None)
Quarter: 2011Q1

REPORT INFORMATION
  Report Type: 
  Country: None (occurrence: None)
  Receive Date: 20110301
  Receipt Date: 20110216
  Transmission Date: 20110831
  Serious: Yes (Other)
  Sender: FDA-Public Use
  Company Number: US-KINGPHARMUSA00001-K201100194

PATIENT
  Sex: Female
  Weight: 81.633 kg

DRUGS (11)
  1. METOPROLOL [Suspect]
     Indication: HYPERTENSION
     Dosage: 100 MG, QD
     Route: 048
  2. HYDROCHLOROTHIAZIDE [Concomitant]
     Dosage: 25 MG, QD
     Route: 048
  3. LEVAQUIN [Concomitant]
     Indication: PNEUMONIA
     Dosage: UNK
     Route: 048
     Dates: start: 20101201, end: 20110101
  4. TRAZODONE HCL [Concomitant]
     Dosage: 100 MG, QHS
     Route: 048
  5. NAPROXEN [Suspect]
     Indication: FIBROMYALGIA
     Dosage: UNK
     Route: 048
     Dates: start: 20100101, end: 20110101
  6. XANAX [Concomitant]
     Dosage: 1 MG, BID
     Route: 048
  7. TOPAMAX [Suspect]
     Indication: VERTIGO
     Dosage: UNK
     Route: 048
     Dates: start: 20100101, end: 20110101
  8. CLONIDINE [Concomitant]
     Dosage: 0.2 MG, QD
     Route: 048
  9. SYNTHROID [Concomitant]
     Dosage: 0.150 MG, UNK
     Route: 048
  10. SKELAXIN [Suspect]
     Indication: FIBROMYALGIA
     Dosage: 800 MG, BID
     Route: 048
     Dates: start: 20101001
  11. SERTRALINE [Suspect]
     Indication: BIPOLAR DISORDER
     Dosage: 150 MG, QD
     Route: 048
     Dates: start: 20101001

REACTIONS (10)
  - PAIN [None]
  - ANAPHYLACTIC SHOCK [None]
  - SWELLING [None]
  - DYSPNOEA [None]
  - PAIN IN EXTREMITY [None]
  - HYPOTENSION [None]
  - HEADACHE [None]
  - ANXIETY [None]
  - FLUID RETENTION [None]
  - PRURITUS [None]
